FAERS Safety Report 13897715 (Version 1)
Quarter: 2017Q3

REPORT INFORMATION
  Report Type: Spontaneous
  Country: US (occurrence: US)
  Receive Date: 20170823
  Receipt Date: 20170823
  Transmission Date: 20171127
  Serious: No
  Sender: FDA-Public Use
  Company Number: US-PFIZER INC-2017363062

PATIENT
  Age: 40 Year
  Sex: Female

DRUGS (1)
  1. MEDROL [Suspect]
     Active Substance: METHYLPREDNISOLONE
     Dosage: 4 MG, DAILY

REACTIONS (5)
  - Musculoskeletal pain [Unknown]
  - Muscular weakness [Unknown]
  - Arthralgia [Unknown]
  - Joint range of motion decreased [Unknown]
  - Joint swelling [Unknown]
